FAERS Safety Report 5011278-8 (Version None)
Quarter: 2006Q2

REPORT INFORMATION
  Report Type: 
  Country: None (occurrence: None)
  Receive Date: 20060404
  Receipt Date: 20051229
  Transmission Date: 20061013
  Serious: No
  Sender: FDA-Public Use
  Company Number: US200512004398

PATIENT
  Age: 54 Year
  Sex: Female
  Weight: 77.1 kg

DRUGS (12)
  1. CYMBALTA [Suspect]
     Indication: BONE PAIN
     Dosage: SEE IMAGE
     Route: 048
     Dates: start: 20051103, end: 20051111
  2. CYMBALTA [Suspect]
     Indication: BONE PAIN
     Dosage: SEE IMAGE
     Route: 048
     Dates: start: 20051028
  3. ASPIRIN [Concomitant]
  4. WELLBUTRIN [Concomitant]
  5. PLAVIX [Concomitant]
  6. SYNTHROID [Concomitant]
  7. COZAAR [Concomitant]
  8. PROTONIX [Concomitant]
  9. METFORMIN [Concomitant]
  10. ZOLOFT [Concomitant]
  11. XANAX /USA/ (ALPRAZOLAM) [Concomitant]
  12. EXCEDRIN P.M. (DIPHENHYDRAMINE CITRATE, PARACETAMOL) [Concomitant]

REACTIONS (9)
  - ASTHENIA [None]
  - BALANCE DISORDER [None]
  - DIFFICULTY IN WALKING [None]
  - DYSARTHRIA [None]
  - FALL [None]
  - HEAD INJURY [None]
  - HYPERSOMNIA [None]
  - MALAISE [None]
  - SOMNOLENCE [None]
